FAERS Safety Report 4419118-2 (Version None)
Quarter: 2004Q3

REPORT INFORMATION
  Report Type: 
  Country: None (occurrence: None)
  Receive Date: 20040809
  Receipt Date: 20040116
  Transmission Date: 20050211
  Serious: No
  Sender: FDA-Public Use
  Company Number: US-GLAXOSMITHKLINE-A0493563A

PATIENT
  Age: 59 Year
  Sex: Female

DRUGS (4)
  1. PAROXETINE HCL [Suspect]
     Dosage: 10MG PER DAY
     Route: 048
  2. THYROID TAB [Concomitant]
  3. HORMONES [Concomitant]
  4. BLOOD PRESSURE MEDICATION [Concomitant]

REACTIONS (3)
  - INSOMNIA [None]
  - TINNITUS [None]
  - WEIGHT INCREASED [None]
